FAERS Safety Report 14337646 (Version 2)
Quarter: 2019Q3

REPORT INFORMATION
  Report Type: Spontaneous
  Country: FR (occurrence: FR)
  Receive Date: 20171229
  Receipt Date: 20190916
  Transmission Date: 20191004
  Serious: Yes (Hospitalization, Other)
  Sender: FDA-Public Use
  Company Number: FR-MYLANLABS-2017M1082811

PATIENT
  Age: 26 Year
  Sex: Female

DRUGS (8)
  1. TYSABRI [Suspect]
     Active Substance: NATALIZUMAB
     Indication: MULTIPLE SCLEROSIS
     Dosage: UNK
     Route: 065
     Dates: start: 2008
  2. TAMSULOSIN [Concomitant]
     Active Substance: TAMSULOSIN
     Indication: MULTIPLE SCLEROSIS
     Dosage: 0.4 MILLIGRAM, QD
     Route: 065
  3. TAMSULOSIN [Concomitant]
     Active Substance: TAMSULOSIN
     Indication: SECONDARY PROGRESSIVE MULTIPLE SCLEROSIS
  4. FAMPYRA [Suspect]
     Active Substance: DALFAMPRIDINE
     Indication: GAIT DISTURBANCE
     Dosage: 10 MILLIGRAM, QD
     Route: 065
  5. FAMPYRA [Suspect]
     Active Substance: DALFAMPRIDINE
     Dosage: 30 MILLIGRAM, QD
     Route: 048
     Dates: start: 20130524, end: 20160316
  6. BACLOFEN. [Suspect]
     Active Substance: BACLOFEN
     Indication: MULTIPLE SCLEROSIS
     Dosage: 10 MILLIGRAM, Q8H
     Route: 065
     Dates: start: 2008
  7. BACLOFEN. [Interacting]
     Active Substance: BACLOFEN
     Dosage: 5 MILLIGRAM, Q8H
     Route: 065
  8. DAL [Interacting]
     Active Substance: DESOGESTREL\ETHINYL ESTRADIOL
     Indication: MULTIPLE SCLEROSIS
     Dosage: 10 MG, TID
     Route: 065

REACTIONS (2)
  - Drug interaction [Unknown]
  - Status epilepticus [Recovered/Resolved]

NARRATIVE: CASE EVENT DATE: 20160316
